FAERS Safety Report 8958131 (Version 1)
Quarter: 2012Q4

REPORT INFORMATION
  Report Type: 
  Country: GB (occurrence: GB)
  Receive Date: 20121211
  Receipt Date: 20121211
  Transmission Date: 20130627
  Serious: Yes (Hospitalization)
  Sender: FDA-Public Use
  Company Number: GB-TEVA-374563ISR

PATIENT
  Age: 78 Year
  Sex: Male
  Weight: 82.55 kg

DRUGS (3)
  1. BISOPROLOL [Suspect]
     Indication: LEFT VENTRICULAR DYSFUNCTION
     Dosage: In the morning.
     Route: 048
     Dates: start: 20120920
  2. ASPIRIN [Suspect]
     Indication: ANTIPLATELET THERAPY
     Dosage: In the morning
     Route: 048
     Dates: start: 20120920
  3. PERINDOPRIL [Suspect]
     Indication: HYPERTENSION
     Dosage: In the morning
     Route: 048
     Dates: start: 20120920

REACTIONS (1)
  - Abscess [Recovering/Resolving]
